FAERS Safety Report 17700941 (Version 2)
Quarter: 2020Q2

REPORT INFORMATION
  Report Type: Spontaneous
  Country: ZA (occurrence: ZA)
  Receive Date: 20200424
  Receipt Date: 20200506
  Transmission Date: 20200714
  Serious: Yes (Other)
  Sender: FDA-Public Use
  Company Number: ZA-AMGEN-ZAFSP2019071803

PATIENT
  Age: 56 Year
  Sex: Female
  Weight: 113 kg

DRUGS (1)
  1. ENBREL [Suspect]
     Active Substance: ETANERCEPT
     Indication: RHEUMATOID ARTHRITIS
     Dosage: 50 MG, WEEKLY
     Route: 058
     Dates: start: 20180327

REACTIONS (15)
  - Blood thyroid stimulating hormone increased [Unknown]
  - C-reactive protein increased [Recovered/Resolved]
  - Platelet count increased [Unknown]
  - Carbon dioxide decreased [Unknown]
  - Brain natriuretic peptide increased [Unknown]
  - Condition aggravated [Unknown]
  - Iron deficiency anaemia [Unknown]
  - Troponin I increased [Unknown]
  - Contusion [Unknown]
  - Anion gap increased [Unknown]
  - Haemolysis [Unknown]
  - Blood creatine phosphokinase MB increased [Unknown]
  - Blood phosphorus increased [Unknown]
  - Carbon dioxide increased [Recovered/Resolved]
  - Blood albumin decreased [Unknown]

NARRATIVE: CASE EVENT DATE: 20190328
